FAERS Safety Report 6277461-9 (Version None)
Quarter: 2009Q3

REPORT INFORMATION
  Report Type: 
  Country: None (occurrence: None)
  Receive Date: 20090722
  Receipt Date: 20090714
  Transmission Date: 20100115
  Serious: Yes (Other)
  Sender: FDA-Public Use
  Company Number: US-PFIZER INC-2009241183

PATIENT
  Sex: Female

DRUGS (1)
  1. GEODON [Suspect]
     Indication: BIPOLAR DISORDER

REACTIONS (1)
  - ABORTION SPONTANEOUS [None]
